FAERS Safety Report 5035178-2 (Version None)
Quarter: 2006Q2

REPORT INFORMATION
  Report Type: 
  Country: None (occurrence: None)
  Receive Date: 20060622
  Receipt Date: 20060620
  Transmission Date: 20061013
  Serious: Yes (Disabling)
  Sender: FDA-Public Use
  Company Number: 214033

PATIENT
  Age: 55 Year
  Sex: Female

DRUGS (1)
  1. RITUXAN [Suspect]
     Indication: NON-HODGKIN'S LYMPHOMA
     Dosage: INTRAVENOUS
     Route: 042

REACTIONS (1)
  - NEUTROPENIA [None]
